FAERS Safety Report 14986741 (Version 1)
Quarter: 2018Q2

REPORT INFORMATION
  Report Type: Spontaneous
  Country: US (occurrence: US)
  Receive Date: 20180608
  Receipt Date: 20180608
  Transmission Date: 20180711
  Serious: Yes (Other)
  Sender: FDA-Public Use
  Company Number: US-ACCORD-063301

PATIENT
  Sex: Female

DRUGS (12)
  1. LIPITOR [Concomitant]
     Active Substance: ATORVASTATIN CALCIUM
  2. ALLOPURINOL. [Suspect]
     Active Substance: ALLOPURINOL
     Indication: PRODUCT USED FOR UNKNOWN INDICATION
     Dates: end: 2017
  3. ADVAIR HFA [Concomitant]
     Active Substance: FLUTICASONE PROPIONATE\SALMETEROL XINAFOATE
  4. LEVEMIR [Concomitant]
     Active Substance: INSULIN DETEMIR
  5. METOPROLOL. [Concomitant]
     Active Substance: METOPROLOL
  6. JAKAFI [Suspect]
     Active Substance: RUXOLITINIB
     Indication: MYELOFIBROSIS
     Dosage: STRENGTH: 5 MG ?DOSE: 5 MG QD
     Route: 048
     Dates: start: 20120306, end: 201709
  7. FUROSEMIDE. [Concomitant]
     Active Substance: FUROSEMIDE
  8. COLECALCIFEROL [Concomitant]
     Active Substance: CHOLECALCIFEROL
  9. LISINOPRIL/LISINOPRIL DIHYDRATE [Concomitant]
  10. METFORMIN [Concomitant]
     Active Substance: METFORMIN HYDROCHLORIDE
  11. ALENDRONIC ACID [Concomitant]
     Active Substance: ALENDRONIC ACID
  12. PIOGLITAZONE/PIOGLITAZONE HYDROCHLORIDE [Concomitant]

REACTIONS (1)
  - Pancytopenia [Unknown]
